FAERS Safety Report 14741104 (Version 5)
Quarter: 2019Q1

REPORT INFORMATION
  Report Type: Spontaneous
  Country: BR (occurrence: BR)
  Receive Date: 20180410
  Receipt Date: 20190117
  Transmission Date: 20190417
  Serious: Yes (Hospitalization)
  Sender: FDA-Public Use
  Company Number: BR-JNJFOC-20180407295

PATIENT
  Age: 61 Year
  Sex: Female
  Weight: 63 kg

DRUGS (7)
  1. OMEPRAZOLE. [Concomitant]
     Active Substance: OMEPRAZOLE
     Route: 065
  2. METHOTREXATE. [Concomitant]
     Active Substance: METHOTREXATE
     Route: 065
  3. XARELTO [Concomitant]
     Active Substance: RIVAROXABAN
     Route: 065
  4. GLIFAGE [Concomitant]
     Active Substance: METFORMIN HYDROCHLORIDE
     Route: 065
  5. DIPYRONE [Concomitant]
     Active Substance: DIPYRONE
     Route: 065
  6. SIMPONI [Suspect]
     Active Substance: GOLIMUMAB
     Indication: RHEUMATOID ARTHRITIS
     Route: 058
     Dates: start: 20130420
  7. PRESS PLUS [Concomitant]
     Route: 065

REACTIONS (6)
  - Fall [Recovering/Resolving]
  - Weight decreased [Unknown]
  - Femur fracture [Recovering/Resolving]
  - Product dose omission [Unknown]
  - Device malfunction [Unknown]
  - Bone density decreased [Unknown]

NARRATIVE: CASE EVENT DATE: 201803
